FAERS Safety Report 9940803 (Version 1)
Quarter: 2014Q1

REPORT INFORMATION
  Report Type: Spontaneous
  Country: US (occurrence: US)
  Receive Date: 20140303
  Receipt Date: 20140303
  Transmission Date: 20141002
  Serious: Yes (Other)
  Sender: FDA-Public Use
  Company Number: US-PFIZER INC-2014058866

PATIENT
  Age: 44 Year
  Sex: Male
  Weight: 118 kg

DRUGS (4)
  1. LYRICA [Suspect]
     Indication: MYALGIA
     Dosage: 100 MG, 2X/DAY
     Dates: start: 20140117, end: 2014
  2. LYRICA [Suspect]
     Indication: PAIN IN EXTREMITY
  3. TRAMADOL [Concomitant]
     Dosage: UNK
  4. CLONIDINE [Concomitant]
     Indication: BLOOD PRESSURE ABNORMAL
     Dosage: UNK

REACTIONS (4)
  - Hepatitis C [Unknown]
  - Abdominal discomfort [Unknown]
  - Abdominal pain upper [Unknown]
  - Pain [Unknown]
